FAERS Safety Report 10347146 (Version 2)
Quarter: 2014Q3

REPORT INFORMATION
  Report Type: Spontaneous
  Country: US (occurrence: US)
  Receive Date: 20140729
  Receipt Date: 20140912
  Transmission Date: 20150326
  Serious: No
  Sender: FDA-Public Use
  Company Number: US-009507513-1405USA013519

PATIENT
  Sex: Female

DRUGS (1)
  1. COPPERTONE DRY SPF 10 [Suspect]
     Active Substance: HOMOSALATE\OCTINOXATE\OCTISALATE\OXYBENZONE
     Indication: PRODUCT USED FOR UNKNOWN INDICATION
     Dosage: UNK, UNKNOWN
     Route: 061
     Dates: start: 20140514

REACTIONS (2)
  - Dermatitis allergic [Unknown]
  - Rash [Unknown]

NARRATIVE: CASE EVENT DATE: 2014
